FAERS Safety Report 7542431-7 (Version None)
Quarter: 2011Q2

REPORT INFORMATION
  Report Type: 
  Country: None (occurrence: None)
  Receive Date: 20110613
  Receipt Date: 20110313
  Transmission Date: 20111010
  Serious: No
  Sender: FDA-Public Use
  Company Number: A0917933A

PATIENT
  Age: 25 Year
  Sex: Female

DRUGS (6)
  1. NEXIUM [Concomitant]
  2. NICORETTE (MINT) [Suspect]
  3. XANAX [Concomitant]
  4. NICOTINE [Suspect]
  5. EFFEXOR [Concomitant]
  6. ADDERALL 10 [Concomitant]

REACTIONS (2)
  - BURNING SENSATION [None]
  - TONGUE BLISTERING [None]
